FAERS Safety Report 22665825 (Version 2)
Quarter: 2023Q4

REPORT INFORMATION
  Report Type: Spontaneous
  Country: CH (occurrence: CH)
  Receive Date: 20230703
  Receipt Date: 20231024
  Transmission Date: 20240110
  Serious: Yes (Other)
  Sender: FDA-Public Use
  Company Number: CH-009507513-2306CHE013781

PATIENT
  Sex: Male

DRUGS (1)
  1. ONCOTICE [Suspect]
     Active Substance: BACILLUS CALMETTE-GUERIN SUBSTRAIN TICE LIVE ANTIGEN
     Indication: Bladder transitional cell carcinoma recurrent
     Dosage: COMPLETED 6 INSTILLATIONS
     Route: 043
     Dates: start: 202106, end: 202107

REACTIONS (8)
  - Bladder transitional cell carcinoma recurrent [Not Recovered/Not Resolved]
  - Urinary bladder polyp [Unknown]
  - Prostatitis [Unknown]
  - Therapy non-responder [Unknown]
  - Bladder irritation [Unknown]
  - Dysuria [Recovered/Resolved]
  - Haematuria [Recovered/Resolved]
  - Abdominal distension [Unknown]

NARRATIVE: CASE EVENT DATE: 20210101
